FAERS Safety Report 7437743-1 (Version None)
Quarter: 2011Q2

REPORT INFORMATION
  Report Type: 
  Country: None (occurrence: None)
  Receive Date: 20110426
  Receipt Date: 20110419
  Transmission Date: 20111010
  Serious: Yes (Death)
  Sender: FDA-Public Use
  Company Number: JP-ROCHE-771543

PATIENT
  Age: 61 Year
  Sex: Female

DRUGS (2)
  1. ACTEMRA [Suspect]
     Indication: RHEUMATOID ARTHRITIS
     Route: 041
     Dates: start: 20101222, end: 20110316
  2. METHOTREXATE [Concomitant]
     Dosage: DOSE FORM: PERORAL AGENT, NOTE: UNCERTAINTY
     Route: 048

REACTIONS (1)
  - CEREBRAL HAEMORRHAGE [None]
